FAERS Safety Report 6244860-0 (Version None)
Quarter: 2009Q2

REPORT INFORMATION
  Report Type: 
  Country: None (occurrence: None)
  Receive Date: 20090625
  Receipt Date: 20090618
  Transmission Date: 20091009
  Serious: Yes (Other)
  Sender: FDA-Public Use
  Company Number: A0792280A

PATIENT
  Age: 18 Year
  Sex: Male

DRUGS (2)
  1. LAMICTAL [Suspect]
     Dosage: 50MG PER DAY
     Route: 048
     Dates: start: 20090101
  2. NO CONCURRENT MEDICATION [Concomitant]

REACTIONS (3)
  - INFECTIOUS MONONUCLEOSIS [None]
  - LIVER FUNCTION TEST ABNORMAL [None]
  - PYREXIA [None]
